FAERS Safety Report 21522162 (Version 1)
Quarter: 2022Q4

REPORT INFORMATION
  Report Type: Spontaneous
  Country: US (occurrence: US)
  Receive Date: 20221028
  Receipt Date: 20221028
  Transmission Date: 20230113
  Serious: No
  Sender: FDA-Public Use
  Company Number: US-009507513-2210USA008033

PATIENT
  Age: 65 Year
  Sex: Male

DRUGS (10)
  1. KEYTRUDA [Suspect]
     Active Substance: PEMBROLIZUMAB
     Dosage: INFUSION
     Dates: start: 20221018
  2. INLYTA [Suspect]
     Active Substance: AXITINIB
     Dosage: 5 MILLIGRAM, BID
     Route: 048
     Dates: start: 20221005
  3. AMLODIPINE [Concomitant]
     Active Substance: AMLODIPINE BESYLATE
  4. CARVEDILOL [Concomitant]
     Active Substance: CARVEDILOL
  5. ELIQUIS [Concomitant]
     Active Substance: APIXABAN
  6. ENALAPRIL [Concomitant]
     Active Substance: ENALAPRIL
  7. EZETIMIBE [Concomitant]
     Active Substance: EZETIMIBE
  8. MAGNESIUM OXIDE [Concomitant]
     Active Substance: MAGNESIUM OXIDE
  9. METFORMIN [Concomitant]
     Active Substance: METFORMIN HYDROCHLORIDE
  10. OXYCODONE [Concomitant]
     Active Substance: OXYCODONE

REACTIONS (2)
  - Fatigue [Not Recovered/Not Resolved]
  - Nausea [Not Recovered/Not Resolved]

NARRATIVE: CASE EVENT DATE: 20221019
